FAERS Safety Report 5851613-1 (Version None)
Quarter: 2008Q3

REPORT INFORMATION
  Report Type: 
  Country: None (occurrence: None)
  Receive Date: 20080820
  Receipt Date: 20080806
  Transmission Date: 20090109
  Serious: Yes (Hospitalization)
  Sender: FDA-Public Use
  Company Number: FR-GENENTECH-265888

PATIENT
  Age: 4 Year
  Sex: Male

DRUGS (6)
  1. XOLAIR [Suspect]
     Indication: ASTHMA
     Dosage: 30 MG, Q4W
     Route: 058
  2. XOLAIR [Suspect]
     Dosage: 75 MG, Q3W
     Route: 058
     Dates: start: 20080226
  3. SINGULAIR [Concomitant]
     Indication: DRUG USE FOR UNKNOWN INDICATION
  4. PULMICORT-100 [Concomitant]
     Indication: DRUG USE FOR UNKNOWN INDICATION
  5. BRICANYL [Concomitant]
     Indication: DRUG USE FOR UNKNOWN INDICATION
  6. ATROVENT [Concomitant]
     Indication: DRUG USE FOR UNKNOWN INDICATION

REACTIONS (1)
  - BRONCHOSPASM [None]
